FAERS Safety Report 11083946 (Version 1)
Quarter: 2015Q2

REPORT INFORMATION
  Report Type: Spontaneous
  Country: US (occurrence: US)
  Receive Date: 20150501
  Receipt Date: 20150501
  Transmission Date: 20150821
  Serious: No
  Sender: FDA-Public Use
  Company Number: US-PFIZER INC-2015145646

PATIENT
  Age: 60 Year
  Sex: Male
  Weight: 76 kg

DRUGS (7)
  1. VALPROIC ACID. [Suspect]
     Active Substance: VALPROIC ACID
     Dosage: 70 MG, 2X/DAY
     Dates: start: 2007
  2. PRILOSEC [Concomitant]
     Active Substance: OMEPRAZOLE MAGNESIUM
  3. COGENTIN [Concomitant]
     Active Substance: BENZTROPINE MESYLATE
     Dosage: 7 MG, 2X/DAY
  4. ZYPREXA [Suspect]
     Active Substance: OLANZAPINE
     Dosage: 1 DF, DAILY
  5. ATENOLOL. [Concomitant]
     Active Substance: ATENOLOL
     Indication: BLOOD PRESSURE
  6. GEODON [Suspect]
     Active Substance: ZIPRASIDONE HYDROCHLORIDE\ZIPRASIDONE MESYLATE
     Dosage: 4 MG, 2X/DAY
     Dates: start: 2007, end: 2013
  7. HALDOL [Concomitant]
     Active Substance: HALOPERIDOL

REACTIONS (4)
  - Gynaecomastia [Not Recovered/Not Resolved]
  - Dry mouth [Unknown]
  - Vision blurred [Unknown]
  - Erectile dysfunction [Unknown]
